FAERS Safety Report 8768162 (Version 4)
Quarter: 2013Q3

REPORT INFORMATION
  Report Type: Spontaneous
  Country: US (occurrence: US)
  Receive Date: 20120904
  Receipt Date: 20130717
  Transmission Date: 20140515
  Serious: Yes (Hospitalization, Disabling, Other)
  Sender: FDA-Public Use
  Company Number: US-009507513-1201USA04018

PATIENT
  Sex: Female
  Weight: 59.87 kg

DRUGS (5)
  1. FOSAMAX [Suspect]
     Indication: OSTEOPOROSIS
     Dosage: 10 MG, QD
     Route: 048
     Dates: start: 199512, end: 200305
  2. FOSAMAX [Suspect]
     Indication: OSTEOPENIA
     Dosage: 70 MG, QW
     Route: 048
     Dates: start: 20010427, end: 200306
  3. ACTONEL [Suspect]
     Indication: OSTEOPOROSIS
     Dosage: 35 MG, QW
     Route: 048
     Dates: start: 20030516, end: 200911
  4. ACTONEL [Suspect]
     Indication: OSTEOPENIA
  5. CALCIUM (UNSPECIFIED) (+) MAGNESIUM (UNSPECIFIED) [Concomitant]
     Dosage: 1500 MG, QD
     Dates: start: 1995

REACTIONS (74)
  - Osteomalacia [Not Recovered/Not Resolved]
  - Intramedullary rod insertion [Unknown]
  - Open reduction of fracture [Unknown]
  - Radius fracture [Recovered/Resolved]
  - Aspartate aminotransferase increased [Not Recovered/Not Resolved]
  - Carpal tunnel syndrome [Unknown]
  - Alanine aminotransferase increased [Not Recovered/Not Resolved]
  - Osteomyelitis chronic [Recovered/Resolved]
  - Femur fracture [Recovered/Resolved]
  - Femur fracture [Recovered/Resolved]
  - Low turnover osteopathy [Unknown]
  - Depression [Not Recovered/Not Resolved]
  - Calcium deficiency [Unknown]
  - Vitamin D deficiency [Unknown]
  - Bundle branch block left [Unknown]
  - Fall [Unknown]
  - Foreign body [Unknown]
  - Otitis externa [Unknown]
  - Rib fracture [Unknown]
  - Lymphoedema [Unknown]
  - Clavicle fracture [Unknown]
  - Thrombophlebitis [Unknown]
  - Haemorrhoidal haemorrhage [Not Recovered/Not Resolved]
  - Hiatus hernia [Unknown]
  - Haemarthrosis [Unknown]
  - Intervertebral disc degeneration [Unknown]
  - Fall [Unknown]
  - Stress fracture [Unknown]
  - Fractured coccyx [Unknown]
  - Tendon injury [Unknown]
  - Muscle strain [Unknown]
  - Device related infection [Not Recovered/Not Resolved]
  - Fracture nonunion [Unknown]
  - Wound [Recovered/Resolved]
  - Cellulitis [Recovered/Resolved]
  - Lymphadenitis [Unknown]
  - Stomatitis [Unknown]
  - Glossitis [Unknown]
  - Fall [Unknown]
  - Rotator cuff syndrome [Not Recovered/Not Resolved]
  - Arthritis [Unknown]
  - Cartilage injury [Unknown]
  - Anaemia [Not Recovered/Not Resolved]
  - Osteoarthritis [Not Recovered/Not Resolved]
  - Rectal haemorrhage [Unknown]
  - Skin papilloma [Unknown]
  - Blood urea increased [Recovering/Resolving]
  - Blood bilirubin increased [Unknown]
  - Tooth disorder [Unknown]
  - Cardiomegaly [Unknown]
  - Insomnia [Unknown]
  - Deep vein thrombosis [Unknown]
  - Fatigue [Unknown]
  - Pneumonia [Unknown]
  - Keratitis [Unknown]
  - Vulvovaginal candidiasis [Unknown]
  - Tinnitus [Unknown]
  - Candida infection [Unknown]
  - Pseudomonas infection [Unknown]
  - Plantar fascial fibromatosis [Unknown]
  - Muscular weakness [Unknown]
  - Hepatic enzyme increased [Unknown]
  - Haematuria [Unknown]
  - Device occlusion [Unknown]
  - Arthralgia [Not Recovered/Not Resolved]
  - Headache [Unknown]
  - Pain in extremity [Not Recovered/Not Resolved]
  - Vertigo [Unknown]
  - Arthralgia [Not Recovered/Not Resolved]
  - Dyspepsia [Not Recovered/Not Resolved]
  - Constipation [Unknown]
  - Pain in extremity [Not Recovered/Not Resolved]
  - Nausea [Unknown]
  - Gastrooesophageal reflux disease [Unknown]
